FAERS Safety Report 7991756-X (Version None)
Quarter: 2011Q4

REPORT INFORMATION
  Report Type: 
  Country: None (occurrence: None)
  Receive Date: 20111219
  Receipt Date: 20111208
  Transmission Date: 20120403
  Serious: Yes (Other)
  Sender: FDA-Public Use
  Company Number: US-ROCHE-794228

PATIENT
  Sex: Male
  Weight: 90.8 kg

DRUGS (2)
  1. ACCUTANE [Suspect]
     Indication: ACNE
     Route: 065
     Dates: start: 19990727, end: 19991231
  2. WELLBUTRIN [Concomitant]

REACTIONS (12)
  - INTESTINAL HAEMORRHAGE [None]
  - CROHN'S DISEASE [None]
  - BLOOD TRIGLYCERIDES INCREASED [None]
  - DIVERTICULITIS [None]
  - INFLAMMATORY BOWEL DISEASE [None]
  - DEPRESSION [None]
  - DRY EYE [None]
  - CHAPPED LIPS [None]
  - SUICIDAL IDEATION [None]
  - IRRITABLE BOWEL SYNDROME [None]
  - HEPATIC ENZYME INCREASED [None]
  - INTESTINAL OBSTRUCTION [None]
